FAERS Safety Report 7667863-8 (Version None)
Quarter: 2011Q3

REPORT INFORMATION
  Report Type: 
  Country: None (occurrence: None)
  Receive Date: 20110806
  Receipt Date: 20110411
  Transmission Date: 20111222
  Serious: No
  Sender: FDA-Public Use
  Company Number: US-ABBOTT-11P-163-0718340-00

PATIENT
  Sex: Female
  Weight: 72.64 kg

DRUGS (2)
  1. NIASPAN [Suspect]
     Indication: BLOOD CHOLESTEROL INCREASED
     Dates: start: 20110201, end: 20110328
  2. SPIRONOLACTONE [Concomitant]
     Indication: HYPERTENSION

REACTIONS (1)
  - MUSCLE SPASMS [None]
